FAERS Safety Report 12202111 (Version 1)
Quarter: 2016Q1

REPORT INFORMATION
  Report Type: Spontaneous
  Country: DE (occurrence: DE)
  Receive Date: 20160322
  Receipt Date: 20160322
  Transmission Date: 20160526
  Serious: Yes (Congenital Anomaly)
  Sender: FDA-Public Use
  Company Number: DE-TEVA-643400GER

PATIENT
  Age: 0 Year
  Sex: Female
  Weight: 2.26 kg

DRUGS (2)
  1. NITROFURANTOIN. [Suspect]
     Active Substance: NITROFURANTOIN
     Indication: URINARY TRACT INFECTION
     Dosage: 50 MILLIGRAM DAILY; 50 MG/D
     Route: 064
     Dates: start: 20150125, end: 20150129
  2. FOLS?URE STADA [Concomitant]
     Indication: PROPHYLAXIS OF NEURAL TUBE DEFECT
     Dosage: 5 MILLIGRAM DAILY; 5 MG/D
     Route: 064
     Dates: start: 20150208, end: 20150909

REACTIONS (2)
  - Congenital ureterocele [Recovering/Resolving]
  - Foetal exposure during pregnancy [Unknown]

NARRATIVE: CASE EVENT DATE: 2015
